FAERS Safety Report 25000531 (Version 2)
Quarter: 2025Q3

REPORT INFORMATION
  Report Type: Report from Study
  Country: EU (occurrence: EU)
  Receive Date: 20250222
  Receipt Date: 20250810
  Transmission Date: 20251021
  Serious: Yes (Hospitalization)
  Sender: ALEXION PHARMACEUTICALS
  Company Number: EU-AstraZeneca-CH-00808872A

PATIENT
  Sex: Female

DRUGS (1)
  1. BENRALIZUMAB [Suspect]
     Active Substance: BENRALIZUMAB

REACTIONS (2)
  - Influenza [Not Recovered/Not Resolved]
  - Injection site ulcer [Not Recovered/Not Resolved]
